FAERS Safety Report 8812085 (Version 2)
Quarter: 2012Q4

REPORT INFORMATION
  Report Type: Report from Study
  Country: GB (occurrence: GB)
  Receive Date: 20120927
  Receipt Date: 20121011
  Transmission Date: 20130627
  Serious: Yes (Other)
  Sender: FDA-Public Use
  Company Number: GB-ROCHE-1134653

PATIENT
  Age: 63 Year
  Sex: Male
  Weight: 84 kg

DRUGS (7)
  1. RANIBIZUMAB [Suspect]
     Indication: DIABETIC RETINAL OEDEMA
     Dosage: PRN
     Route: 050
     Dates: start: 20111018, end: 20111018
  2. RANIBIZUMAB [Suspect]
     Dosage: PRN. most recent dose of study medication on 28 Feb 2012
     Route: 050
     Dates: start: 20120228, end: 20120228
  3. RAMIPRIL [Concomitant]
  4. SIMVASTATIN [Concomitant]
  5. ASPIRIN [Concomitant]
  6. NOVORAPID [Concomitant]
  7. METFORMIN [Concomitant]

REACTIONS (2)
  - Vitreous haemorrhage [Recovering/Resolving]
  - Retinopathy proliferative [Not Recovered/Not Resolved]
